FAERS Safety Report 5717512-0 (Version None)
Quarter: 2008Q2

REPORT INFORMATION
  Report Type: 
  Country: None (occurrence: None)
  Receive Date: 20080425
  Receipt Date: 20080414
  Transmission Date: 20081010
  Serious: Yes (Hospitalization)
  Sender: FDA-Public Use
  Company Number: US-JNJFOC-20080404733

PATIENT
  Sex: Female
  Weight: 49.9 kg

DRUGS (8)
  1. DURAGESIC-100 [Suspect]
     Dosage: 3X 25UG/HR PATCHES
     Route: 062
  2. DURAGESIC-100 [Suspect]
     Dosage: 1X 75UG/HR PATCH
     Route: 062
  3. DURAGESIC-100 [Suspect]
     Indication: BACK PAIN
     Dosage: 1X 100UG/HR PATCH PLUS 1X 75UG/HR PATCH
     Route: 062
  4. XANAX [Concomitant]
     Route: 065
  5. NEURONTIN [Concomitant]
     Route: 065
  6. SOMA [Concomitant]
     Route: 065
  7. PERCOCET [Concomitant]
     Route: 065
  8. VIOKASE [Concomitant]
     Route: 065

REACTIONS (7)
  - ABDOMINAL PAIN [None]
  - DRUG INEFFECTIVE [None]
  - INCORRECT DRUG ADMINISTRATION DURATION [None]
  - INTENTIONAL DRUG MISUSE [None]
  - PAIN [None]
  - PHARMACEUTICAL PRODUCT COMPLAINT [None]
  - WRONG TECHNIQUE IN DRUG USAGE PROCESS [None]
